FAERS Safety Report 9753814 (Version 2)
Quarter: 2014Q1

REPORT INFORMATION
  Report Type: Spontaneous
  Country: GB (occurrence: GB)
  Receive Date: 20131213
  Receipt Date: 20140311
  Transmission Date: 20141002
  Serious: Yes (Life-Threatening)
  Sender: FDA-Public Use
  Company Number: PHFR2013GB007034

PATIENT
  Age: 73 Year
  Sex: Female

DRUGS (10)
  1. CICLOSPORIN [Suspect]
     Indication: AUTOIMMUNE HAEMOLYTIC ANAEMIA
     Dosage: 50 MG, BID
     Route: 048
     Dates: start: 20131116, end: 20131125
  2. CICLOSPORIN [Suspect]
     Dosage: 25 MG, BID
     Route: 048
     Dates: start: 20131126, end: 20131127
  3. METFORMIN [Suspect]
     Indication: DIABETES MELLITUS
     Dosage: 500 MG, TID
     Route: 048
     Dates: end: 20131125
  4. IRBESARTAN [Suspect]
     Indication: HYPERTENSION
     Dosage: 150 MG, QD
     Route: 048
     Dates: end: 20131125
  5. ISOSORBIDE MONONITRATE [Concomitant]
  6. CARBOCISTEINE [Concomitant]
  7. FOLIC ACID [Concomitant]
  8. EFUDIX [Concomitant]
  9. BISOPROLOL [Concomitant]
  10. MABTHERA [Concomitant]

REACTIONS (1)
  - Renal failure [Unknown]
